FAERS Safety Report 5989598-X (Version None)
Quarter: 2008Q4

REPORT INFORMATION
  Report Type: 
  Country: None (occurrence: None)
  Receive Date: 20081208
  Receipt Date: 20081203
  Transmission Date: 20090506
  Serious: Yes (Life-Threatening, Hospitalization, Other)
  Sender: FDA-Public Use
  Company Number: 2008SP018660

PATIENT
  Age: 48 Year
  Sex: Male
  Weight: 92 kg

DRUGS (8)
  1. PEG-INTRON [Suspect]
     Indication: HEPATITIS C
     Dosage: 100 MCG;QW;SC
     Route: 058
     Dates: start: 20080826, end: 20080909
  2. REBETOL [Suspect]
     Indication: HEPATITIS C
     Dosage: 800 MG;QD;PO
     Route: 048
     Dates: start: 20080826, end: 20080909
  3. URSO 250 [Concomitant]
  4. TAKEPRON [Concomitant]
  5. LASIX [Concomitant]
  6. ALDACTONE [Concomitant]
  7. MAGMITT [Concomitant]
  8. MUCOSTA [Concomitant]

REACTIONS (4)
  - CONDITION AGGRAVATED [None]
  - DIZZINESS [None]
  - POST PROCEDURAL INFECTION [None]
  - SICK SINUS SYNDROME [None]
